FAERS Safety Report 16181030 (Version 3)
Quarter: 2019Q2

REPORT INFORMATION
  Report Type: Report from Study
  Country: US (occurrence: US)
  Receive Date: 20190410
  Receipt Date: 20190429
  Transmission Date: 20190711
  Serious: Yes (Hospitalization)
  Sender: FDA-Public Use
  Company Number: US-ACTELION-A-NJ2019-187377

PATIENT
  Age: 70 Year
  Sex: Female

DRUGS (18)
  1. SYNTHROID [Concomitant]
     Active Substance: LEVOTHYROXINE SODIUM
     Dosage: UNK
     Dates: start: 20190328
  2. OPSUMIT [Suspect]
     Active Substance: MACITENTAN
     Indication: PULMONARY ARTERIAL HYPERTENSION
     Dosage: 10 MG, QD
     Route: 048
     Dates: start: 20181124
  3. KLOR-CON [Concomitant]
     Active Substance: POTASSIUM CHLORIDE
     Dosage: UNK
     Dates: start: 20190328
  4. DEMADEX [Concomitant]
     Active Substance: TORSEMIDE
     Dosage: UNK
     Dates: start: 20190328
  5. PREDNISONE. [Concomitant]
     Active Substance: PREDNISONE
     Dosage: UNK
     Dates: start: 20190328
  6. LASIX [Concomitant]
     Active Substance: FUROSEMIDE
     Dosage: UNK
     Dates: start: 20190328
  7. THERAPEUTIC MULTIVITAMIN [Concomitant]
     Dosage: UNK
     Dates: start: 20190328
  8. COUMADIN [Concomitant]
     Active Substance: WARFARIN SODIUM
     Dosage: UNK
     Dates: start: 20190328
  9. VITAMIN D3 [Concomitant]
     Active Substance: CHOLECALCIFEROL
     Dosage: UNK
     Dates: start: 20190328
  10. GLUCOPHAGE [Concomitant]
     Active Substance: METFORMIN HYDROCHLORIDE
     Dosage: UNK
     Dates: start: 20190328
  11. SINGULAIR [Concomitant]
     Active Substance: MONTELUKAST SODIUM
     Dosage: UNK
     Dates: start: 20190328
  12. LIPITOR [Concomitant]
     Active Substance: ATORVASTATIN CALCIUM
     Dosage: UNK
     Dates: start: 20190328
  13. PRILOSEC [Concomitant]
     Active Substance: OMEPRAZOLE MAGNESIUM
     Dosage: UNK
     Dates: start: 20190328
  14. UPTRAVI [Suspect]
     Active Substance: SELEXIPAG
     Indication: PULMONARY ARTERIAL HYPERTENSION
     Dosage: 400 MCG, BID
     Route: 048
  15. DESYREL [Concomitant]
     Active Substance: TRAZODONE HYDROCHLORIDE
     Dosage: UNK
     Dates: start: 20190328
  16. UPTRAVI [Suspect]
     Active Substance: SELEXIPAG
     Dosage: 200 MCG, BID
     Route: 048
     Dates: start: 201902
  17. ZOFRAN [Concomitant]
     Active Substance: ONDANSETRON HYDROCHLORIDE
     Dosage: UNK
     Dates: start: 20190328
  18. REVATIO [Concomitant]
     Active Substance: SILDENAFIL CITRATE
     Dosage: UNK
     Dates: start: 20190328

REACTIONS (24)
  - Pyrexia [Recovered/Resolved]
  - Monocyte percentage decreased [Recovered/Resolved]
  - Blood glucose increased [Recovered/Resolved]
  - Vomiting [Recovered/Resolved]
  - Neutrophil percentage increased [Recovered/Resolved]
  - Eosinophil count decreased [Recovered/Resolved]
  - Red blood cell count decreased [Recovered/Resolved]
  - Swelling [Unknown]
  - Influenza [Recovered/Resolved]
  - Diarrhoea [Recovered/Resolved]
  - Hypophagia [Recovered/Resolved]
  - Lymphocyte percentage decreased [Recovered/Resolved]
  - Haemoglobin decreased [Recovered/Resolved]
  - Adrenal insufficiency [Recovered/Resolved]
  - Blood calcium decreased [Recovered/Resolved]
  - Oedema [Unknown]
  - Platelet count decreased [Recovered/Resolved]
  - Lymphocyte count decreased [Recovered/Resolved]
  - Hypotension [Recovered/Resolved]
  - White blood cell count decreased [Recovered/Resolved]
  - Blood chloride decreased [Recovered/Resolved]
  - Haematocrit decreased [Recovered/Resolved]
  - Blood sodium decreased [Recovered/Resolved]
  - Carbon dioxide decreased [Recovered/Resolved]

NARRATIVE: CASE EVENT DATE: 20190227
